FAERS Safety Report 22254120 (Version 1)
Quarter: 2023Q2

REPORT INFORMATION
  Report Type: Spontaneous
  Country: BR (occurrence: BR)
  Receive Date: 20230426
  Receipt Date: 20230426
  Transmission Date: 20230722
  Serious: Yes (Death, Hospitalization, Other)
  Sender: FDA-Public Use
  Company Number: BR-SA-2023SA127052

PATIENT
  Age: 66 Year
  Sex: Male

DRUGS (3)
  1. THYMOGLOBULIN [Suspect]
     Active Substance: LAPINE T-LYMPHOCYTE IMMUNE GLOBULIN
     Indication: Immunosuppressant drug therapy
     Dosage: UNK
  2. EVEROLIMUS [Suspect]
     Active Substance: EVEROLIMUS
     Indication: Immunosuppressant drug therapy
     Dosage: UNK
  3. TACROLIMUS [Suspect]
     Active Substance: TACROLIMUS
     Indication: Immunosuppressant drug therapy
     Dosage: UNK

REACTIONS (23)
  - Guillain-Barre syndrome [Fatal]
  - Aphasia [Fatal]
  - Quadriparesis [Fatal]
  - Hyporeflexia [Fatal]
  - Areflexia [Fatal]
  - Multiple organ dysfunction syndrome [Fatal]
  - Disseminated strongyloidiasis [Fatal]
  - Asthenia [Fatal]
  - Decreased appetite [Fatal]
  - Abdominal pain upper [Fatal]
  - Abdominal pain [Fatal]
  - Faeces discoloured [Fatal]
  - Nausea [Fatal]
  - Vomiting [Fatal]
  - Dehydration [Fatal]
  - Erosive duodenitis [Fatal]
  - Cough [Fatal]
  - Respiratory distress [Fatal]
  - Respiratory failure [Fatal]
  - Disorientation [Fatal]
  - Petechiae [Fatal]
  - Acute respiratory distress syndrome [Fatal]
  - Klebsiella infection [Unknown]
